FAERS Safety Report 9631042 (Version 2)
Quarter: 2013Q4

REPORT INFORMATION
  Report Type: Spontaneous
  Country: JP (occurrence: JP)
  Receive Date: 20131018
  Receipt Date: 20131018
  Transmission Date: 20140711
  Serious: Yes (Hospitalization, Other)
  Sender: FDA-Public Use
  Company Number: JP-ASTRAZENECA-2013SE69874

PATIENT
  Sex: Female

DRUGS (1)
  1. CRESTOR [Suspect]
     Route: 048
     Dates: start: 201305, end: 201308

REACTIONS (3)
  - Large intestinal haemorrhage [Unknown]
  - Myalgia [Not Recovered/Not Resolved]
  - Blood creatine phosphokinase increased [Recovering/Resolving]
